FAERS Safety Report 23956820 (Version 1)
Quarter: 2024Q2

REPORT INFORMATION
  Report Type: Spontaneous
  Country: US (occurrence: US)
  Receive Date: 20240610
  Receipt Date: 20240610
  Transmission Date: 20240716
  Serious: No
  Sender: FDA-Public Use
  Company Number: US-VANDA PHARMACEUTICALS, INC-2023ILOUS001915

PATIENT
  Sex: Female

DRUGS (2)
  1. FANAPT [Suspect]
     Active Substance: ILOPERIDONE
     Indication: Schizophrenia
     Dosage: STARTER PACK, MAX DOSE IS 12 MILLIGRAM TABLET
  2. FANAPT [Suspect]
     Active Substance: ILOPERIDONE
     Dosage: STARTER PACK, MAX DOSE IS 12 MILLIGRAM TABLET

REACTIONS (1)
  - Epistaxis [Unknown]
